FAERS Safety Report 7675419-6 (Version None)
Quarter: 2011Q3

REPORT INFORMATION
  Report Type: 
  Country: None (occurrence: None)
  Receive Date: 20110810
  Receipt Date: 20090413
  Transmission Date: 20111222
  Serious: Yes (Other)
  Sender: FDA-Public Use
  Company Number: US-BAYER-200829339NA

PATIENT
  Sex: Female
  Weight: 70.295 kg

DRUGS (21)
  1. MULTIHANCE [Suspect]
     Indication: BRAIN INJURY
  2. SENSIPAR [Concomitant]
  3. PHENYTOIN [Concomitant]
  4. EPOGEN [Concomitant]
  5. MAGNEVIST [Suspect]
     Indication: NUCLEAR MAGNETIC RESONANCE IMAGING
  6. PROHANCE [Suspect]
     Indication: PRODUCT USED FOR UNKNOWN INDICATION
  7. GABAPENTIN [Concomitant]
  8. INSULIN [Concomitant]
  9. PROCRIT [Concomitant]
  10. OPTIMARK [Suspect]
     Indication: NUCLEAR MAGNETIC RESONANCE IMAGING
  11. ZOLPIDEM [Concomitant]
  12. RENAGEL [Concomitant]
  13. MAGNEVIST [Suspect]
     Indication: BRAIN INJURY
  14. OMNISCAN [Suspect]
     Dosage: UNK, ONCE
     Dates: start: 20060223, end: 20060223
  15. MULTIHANCE [Suspect]
     Indication: NUCLEAR MAGNETIC RESONANCE IMAGING
  16. OPTIMARK [Suspect]
     Indication: BRAIN INJURY
  17. SYNTHROID [Concomitant]
  18. ACCUPRIL [Concomitant]
  19. GADOLINIUM IN UNSPECIFIED DRUG [Suspect]
     Indication: NUCLEAR MAGNETIC RESONANCE IMAGING BRAIN
     Dosage: UNK UNK, ONCE
     Dates: start: 20060724, end: 20060724
  20. OMNISCAN [Suspect]
     Indication: NUCLEAR MAGNETIC RESONANCE IMAGING BRAIN
     Dosage: UNK, ONCE
     Dates: start: 20060220, end: 20060220
  21. PROHANCE [Suspect]
     Indication: BRAIN INJURY

REACTIONS (13)
  - NEPHROGENIC SYSTEMIC FIBROSIS [None]
  - MOBILITY DECREASED [None]
  - MYALGIA [None]
  - SKIN INDURATION [None]
  - GENERAL PHYSICAL HEALTH DETERIORATION [None]
  - INJURY [None]
  - ARTHRALGIA [None]
  - SKIN DISCOLOURATION [None]
  - EMOTIONAL DISTRESS [None]
  - PAIN [None]
  - JOINT STIFFNESS [None]
  - ANXIETY [None]
  - DEPRESSION [None]
